FAERS Safety Report 6875259-1 (Version None)
Quarter: 2010Q3

REPORT INFORMATION
  Report Type: 
  Country: None (occurrence: None)
  Receive Date: 20100727
  Receipt Date: 20100715
  Transmission Date: 20110219
  Serious: Yes (Other)
  Sender: FDA-Public Use
  Company Number: US-JNJCH-2010016898

PATIENT
  Age: 46 Year
  Sex: Female
  Weight: 108.9 kg

DRUGS (5)
  1. LISTERINE TOTAL CARE ANTICAVITY MOUTHWASH CINNAMINT [Suspect]
     Indication: DENTAL DISORDER PROPHYLAXIS
     Dosage: TEXT:TWICE
     Route: 048
     Dates: start: 20100712, end: 20100713
  2. BENECOL [Concomitant]
     Indication: BLOOD PRESSURE
     Dosage: TEXT:40MG DAILY
     Route: 065
     Dates: start: 20050101
  3. METOPROLOL SUCCINATE [Concomitant]
     Indication: BLOOD PRESSURE
     Dosage: TEXT:50MG 2X DAILY
     Route: 065
  4. HYDROCHLOROTHIAZIDE [Concomitant]
     Indication: BLOOD PRESSURE
     Dosage: TEXT:12.5MG DAILY
     Route: 065
  5. LEXAPRO [Concomitant]
     Indication: DEPRESSION
     Dosage: TEXT:20MG DAILY
     Route: 065

REACTIONS (4)
  - HYPERSENSITIVITY [None]
  - LYMPHADENOPATHY [None]
  - RETCHING [None]
  - TONGUE BLISTERING [None]
